FAERS Safety Report 19580384 (Version 1)
Quarter: 2021Q3

REPORT INFORMATION
  Report Type: Spontaneous
  Country: US (occurrence: US)
  Receive Date: 20210719
  Receipt Date: 20210719
  Transmission Date: 20211014
  Serious: No
  Sender: FDA-Public Use
  Company Number: US-NOVOPROD-792513

PATIENT
  Age: 75 Year
  Sex: Female

DRUGS (2)
  1. OZEMPIC [Suspect]
     Active Substance: SEMAGLUTIDE
     Indication: PRODUCT USED FOR UNKNOWN INDICATION
     Dosage: UNK
     Route: 058
     Dates: start: 202012, end: 20210203
  2. OZEMPIC [Suspect]
     Active Substance: SEMAGLUTIDE
     Dosage: 18 CLICKS, QW
     Route: 058
     Dates: start: 20210204

REACTIONS (4)
  - Peripheral swelling [Not Recovered/Not Resolved]
  - Flatulence [Recovered/Resolved]
  - Diarrhoea [Recovered/Resolved]
  - Off label use [Unknown]

NARRATIVE: CASE EVENT DATE: 20210204
